FAERS Safety Report 16184222 (Version 1)
Quarter: 2019Q2

REPORT INFORMATION
  Report Type: Spontaneous
  Country: US (occurrence: US)
  Receive Date: 20190411
  Receipt Date: 20190411
  Transmission Date: 20190711
  Serious: No
  Sender: FDA-Public Use
  Company Number: US-ALKEM LABORATORIES LIMITED-US-ALKEM-2018-06058

PATIENT
  Age: 13 Year
  Sex: Male

DRUGS (16)
  1. RISPERIDONE. [Suspect]
     Active Substance: RISPERIDONE
     Indication: ABNORMAL BEHAVIOUR
     Dosage: 0.5 MG, AT BEDTIME
     Route: 065
  2. ARIPIPRAZOLE. [Concomitant]
     Active Substance: ARIPIPRAZOLE
     Indication: PRODUCT USED FOR UNKNOWN INDICATION
     Dosage: 5 MG, QD
     Route: 065
  3. QUETIAPINE FUMARATE. [Suspect]
     Active Substance: QUETIAPINE FUMARATE
     Indication: AGGRESSION
     Dosage: 50 MG, PRN
     Route: 065
  4. CLONIDINE. [Concomitant]
     Active Substance: CLONIDINE
     Indication: INSOMNIA
     Dosage: 0.1 MG, AT BEDTIME
     Route: 065
  5. GUANFACINE. [Concomitant]
     Active Substance: GUANFACINE
     Indication: EMOTIONAL DISORDER
     Dosage: 1 MG, AT BEDTIME
     Route: 065
  6. QUETIAPINE FUMARATE. [Suspect]
     Active Substance: QUETIAPINE FUMARATE
     Indication: AGITATION
     Dosage: ~4 TIMES PER WEEK
     Route: 065
  7. CLONIDINE. [Concomitant]
     Active Substance: CLONIDINE
     Indication: PSYCHOMOTOR HYPERACTIVITY
     Dosage: 0.4 MG, AT BEDTIME, WITH AN ADDITIONAL 0.1 MG, IN THE MORNING
     Route: 065
  8. CITALOPRAM [Concomitant]
     Active Substance: CITALOPRAM HYDROBROMIDE
     Indication: AGGRESSION
     Dosage: 10 MG, QD
     Route: 065
  9. RISPERIDONE. [Suspect]
     Active Substance: RISPERIDONE
     Indication: ANXIETY
     Dosage: 1 MG, AT BEDTIME
     Route: 065
  10. RISPERIDONE. [Suspect]
     Active Substance: RISPERIDONE
     Dosage: 1 MG, BID
     Route: 065
  11. GUANFACINE. [Concomitant]
     Active Substance: GUANFACINE
     Indication: IMPULSIVE BEHAVIOUR
     Dosage: 2 MG, AT BEDTIME
     Route: 065
  12. CITALOPRAM [Concomitant]
     Active Substance: CITALOPRAM HYDROBROMIDE
     Indication: AGGRESSION
     Dosage: 20 MG, QD
     Route: 065
  13. LORAZEPAM. [Concomitant]
     Active Substance: LORAZEPAM
     Indication: AGITATION
     Dosage: 0.5 MG, PRN
     Route: 065
  14. CLONIDINE. [Concomitant]
     Active Substance: CLONIDINE
     Dosage: 0.1 MG, UNK
  15. ARIPIPRAZOLE. [Concomitant]
     Active Substance: ARIPIPRAZOLE
     Dosage: 2.5 MG, QD
     Route: 065
  16. CITALOPRAM [Concomitant]
     Active Substance: CITALOPRAM HYDROBROMIDE
     Dosage: 30 MG, QD
     Route: 065

REACTIONS (2)
  - Increased appetite [Recovering/Resolving]
  - Weight increased [Unknown]
